FAERS Safety Report 25019515 (Version 1)
Quarter: 2025Q1

REPORT INFORMATION
  Report Type: Spontaneous
  Country: FR (occurrence: FR)
  Receive Date: 20250227
  Receipt Date: 20250227
  Transmission Date: 20250409
  Serious: Yes (Other)
  Sender: PURDUE
  Company Number: FR-PURDUE-USA-2025-0315721

PATIENT
  Age: 48 Year
  Sex: Female
  Weight: 97 kg

DRUGS (4)
  1. OXYCODONE HYDROCHLORIDE [Suspect]
     Active Substance: OXYCODONE HYDROCHLORIDE
     Indication: Pain
     Dosage: 200 MILLIGRAM, DAILY
     Route: 048
     Dates: start: 2014
  2. OXYCODONE HYDROCHLORIDE [Suspect]
     Active Substance: OXYCODONE HYDROCHLORIDE
     Dosage: 30 MILLIGRAM, DAILY
     Route: 048
     Dates: start: 2014
  3. RIVOTRIL [Suspect]
     Active Substance: CLONAZEPAM
     Indication: Pain
     Route: 048
  4. NEFOPAM [Suspect]
     Active Substance: NEFOPAM
     Indication: Pain
     Route: 048

REACTIONS (2)
  - Toothache [Not Recovered/Not Resolved]
  - Tooth erosion [Not Recovered/Not Resolved]
